FAERS Safety Report 9902655 (Version 1)
Quarter: 2014Q1

REPORT INFORMATION
  Report Type: Spontaneous
  Country: US (occurrence: US)
  Receive Date: 20140217
  Receipt Date: 20140217
  Transmission Date: 20141002
  Serious: No
  Sender: FDA-Public Use
  Company Number: US-PFIZER INC-2014040568

PATIENT
  Age: 68 Year
  Sex: Male
  Weight: 83.9 kg

DRUGS (5)
  1. ADVIL [Suspect]
     Indication: PAIN IN EXTREMITY
     Dosage: 200 MG, AS NEEDED
     Route: 048
     Dates: start: 201402
  2. LISINOPRIL [Concomitant]
     Dosage: 10 MG, UNK
  3. ALPRAZOLAM [Concomitant]
     Dosage: 1 MG, THREE TIMES A DAY
  4. FLUVOXAMINE [Concomitant]
     Dosage: 50 MG, UNK
  5. PRAVASTATIN [Concomitant]
     Indication: BLOOD CHOLESTEROL ABNORMAL
     Dosage: 40 MG, UNK

REACTIONS (1)
  - Blood pressure increased [Unknown]
